FAERS Safety Report 7987909-7 (Version None)
Quarter: 2011Q4

REPORT INFORMATION
  Report Type: 
  Country: None (occurrence: None)
  Receive Date: 20111216
  Receipt Date: 20101130
  Transmission Date: 20120403
  Serious: No
  Sender: FDA-Public Use
  Company Number: US-BRISTOL-MYERS SQUIBB COMPANY-15386006

PATIENT
  Age: 55 Year
  Sex: Female

DRUGS (2)
  1. PAXIL [Suspect]
     Dosage: 30HS
  2. ABILIFY [Suspect]
     Indication: DEPRESSION
     Dates: start: 20100603

REACTIONS (2)
  - ARTHRALGIA [None]
  - BURNING SENSATION [None]
